FAERS Safety Report 4334845-3 (Version None)
Quarter: 2004Q2

REPORT INFORMATION
  Report Type: 
  Country: None (occurrence: None)
  Receive Date: 20040405
  Receipt Date: 20040326
  Transmission Date: 20050107
  Serious: Yes (Hospitalization)
  Sender: FDA-Public Use
  Company Number: 200410043BYL

PATIENT
  Age: 76 Year
  Sex: Male

DRUGS (8)
  1. CIPROFLOXACIN [Suspect]
     Indication: PNEUMONIA
     Dosage: 300 MG, BID, INTRAVENOUS DRIP
     Route: 041
     Dates: start: 20040123, end: 20040129
  2. SOLU-MEDROL [Concomitant]
  3. FUNGUARD [Concomitant]
  4. NEOPHYLLIN [Concomitant]
  5. FIRSTCIN [Concomitant]
  6. CLINDAMYCIN HCL [Concomitant]
  7. FOSMICIN S [Concomitant]
  8. MINOMYCIN [Concomitant]

REACTIONS (1)
  - RHABDOMYOLYSIS [None]
